FAERS Safety Report 9294171 (Version 1)
Quarter: 2013Q1

REPORT INFORMATION
  Report Type: Spontaneous
  Country: US (occurrence: None)
  Receive Date: 20121227
  Receipt Date: 20121227
  Transmission Date: 20140127
  Serious: Yes (Hospitalization)
  Sender: FDA-Public Use
  Company Number: PHEH2011US011843

PATIENT
  Age: 35 Year
  Sex: Male
  Weight: 111 kg

DRUGS (3)
  1. EXJADE (*CGP 72670*) DISPENRSIBLE TABLET [Suspect]
     Indication: SICKLE CELL ANAEMIA
     Dosage: (2000 MG, QD)
     Route: 048
     Dates: start: 2007
  2. OXYCODONE (OXYCODONE) [Concomitant]
  3. BLOOD TRANSFUSION, AUXILIARY PRODUCTS NO INGREDIENTS/SUBSTANCE) [Concomitant]

REACTIONS (2)
  - Sickle cell anaemia with crisis [None]
  - Pain [None]
